FAERS Safety Report 10927420 (Version 1)
Quarter: 2015Q1

REPORT INFORMATION
  Report Type: Report from Study
  Country: SI (occurrence: SI)
  Receive Date: 20150318
  Receipt Date: 20150318
  Transmission Date: 20150721
  Serious: Yes (Other)
  Sender: FDA-Public Use
  Company Number: SI-BAXTER-2015BAX013442

PATIENT

DRUGS (12)
  1. NATRIJEV KLORID 0,9% RAZTOPINA ZA INFUNDIRANJE, BP BAXTER, 1000ML, VIA [Suspect]
     Active Substance: SODIUM CHLORIDE
     Indication: VEHICLE SOLUTION USE
     Route: 042
  2. DIAZEPAM. [Suspect]
     Active Substance: DIAZEPAM
     Indication: PRODUCT USED FOR UNKNOWN INDICATION
     Dosage: 5 TO 10 MG
     Route: 048
  3. REMIFENTANIL [Suspect]
     Active Substance: REMIFENTANIL
     Indication: INDUCTION OF ANAESTHESIA
     Route: 042
  4. SEVOFLURAN BAXTER 250 ML PARA ZA INHALIRANJE, TEKOCINA [Suspect]
     Active Substance: SEVOFLURANE
     Indication: INDUCTION OF ANAESTHESIA
     Route: 055
  5. LEVOBUPIVACAINE [Suspect]
     Active Substance: LEVOBUPIVACAINE
     Indication: POSTOPERATIVE ANALGESIA
     Route: 042
  6. SEVOFLURAN BAXTER 250 ML PARA ZA INHALIRANJE, TEKOCINA [Suspect]
     Active Substance: SEVOFLURANE
     Indication: MAINTENANCE OF ANAESTHESIA
     Dosage: 2 TO 2.5 PERCENT
     Route: 055
  7. VECURONIUM [Suspect]
     Active Substance: VECURONIUM BROMIDE
     Indication: INDUCTION OF ANAESTHESIA
     Route: 065
  8. CEFAZOLINE [Suspect]
     Active Substance: CEFAZOLIN SODIUM
     Indication: ANTIBIOTIC PROPHYLAXIS
     Dosage: 2 GRAM PER 100 MILLILITER 0.9 PERCENT SODIUM CHLORIDE
     Route: 042
  9. NEOSTIGMINE [Suspect]
     Active Substance: NEOSTIGMINE
     Indication: NEUROMUSCULAR BLOCKADE REVERSAL
     Route: 065
  10. ATROPINE [Suspect]
     Active Substance: ATROPINE
     Indication: NEUROMUSCULAR BLOCKADE REVERSAL
     Route: 042
  11. OXYGEN. [Suspect]
     Active Substance: OXYGEN
     Indication: OXYGEN SUPPLEMENTATION
     Route: 055
  12. LEVOBUPIVACAINE [Suspect]
     Active Substance: LEVOBUPIVACAINE
     Route: 042

REACTIONS (1)
  - Lung infiltration [Unknown]
